FAERS Safety Report 13113168 (Version 1)
Quarter: 2017Q1

REPORT INFORMATION
  Report Type: Spontaneous
  Country: US (occurrence: US)
  Receive Date: 20170113
  Receipt Date: 20170113
  Transmission Date: 20170428
  Serious: Yes (Disabling, Other)
  Sender: FDA-Public Use
  Company Number: None

PATIENT
  Age: 77 Year
  Weight: 47.7 kg

DRUGS (8)
  1. INDAPAMIDE. [Concomitant]
     Active Substance: INDAPAMIDE
  2. PREVAGEN [Concomitant]
     Active Substance: DIETARY SUPPLEMENT
  3. BOSWELIA [Concomitant]
  4. AMLODIPINE 5 MG/ 2.5 MG [Suspect]
     Active Substance: AMLODIPINE BESYLATE
     Indication: HYPERTENSION
     Dosage: ?          QUANTITY:30 TABLET(S);?
     Route: 048
     Dates: start: 20161012, end: 20170103
  5. VITAMIN C [Concomitant]
     Active Substance: ASCORBIC ACID
  6. HORSE TAIL [Concomitant]
  7. CALCIUM [Concomitant]
     Active Substance: CALCIUM
  8. SWEDISH BITTERS [Concomitant]

REACTIONS (4)
  - Dyskinesia [None]
  - Diplopia [None]
  - Dysphonia [None]
  - Visual acuity reduced [None]

NARRATIVE: CASE EVENT DATE: 20161014
